FAERS Safety Report 10983713 (Version 3)
Quarter: 2015Q2

REPORT INFORMATION
  Report Type: Spontaneous
  Country: JP (occurrence: JP)
  Receive Date: 20150403
  Receipt Date: 20150518
  Transmission Date: 20150821
  Serious: Yes (Other)
  Sender: FDA-Public Use
  Company Number: JP-PFIZER INC-2015111365

PATIENT
  Age: 67 Year
  Sex: Male
  Weight: 77.2 kg

DRUGS (5)
  1. FENTANIL [Concomitant]
     Active Substance: FENTANYL
     Dosage: 4 MG, DAILY
  2. LYRICA [Suspect]
     Active Substance: PREGABALIN
     Indication: NEURALGIA
     Dosage: 75 MG, 2X/DAY
     Route: 048
     Dates: start: 20150201, end: 20150213
  3. LASTET [Concomitant]
     Active Substance: ETOPOSIDE
     Dosage: 160 MG, UNK
  4. ZYPREXA [Concomitant]
     Active Substance: OLANZAPINE
     Indication: VOMITING
     Dosage: 2.5 MG, DAILY
     Route: 048
  5. FENTANIL [Concomitant]
     Active Substance: FENTANYL
     Indication: CANCER PAIN
     Dosage: 8 MG, DAILY
     Route: 003

REACTIONS (1)
  - Metastases to central nervous system [Unknown]

NARRATIVE: CASE EVENT DATE: 2015
